FAERS Safety Report 14436473 (Version 3)
Quarter: 2019Q3

REPORT INFORMATION
  Report Type: Spontaneous
  Country: US (occurrence: US)
  Receive Date: 20180125
  Receipt Date: 20190808
  Transmission Date: 20191004
  Serious: No
  Sender: FDA-Public Use
  Company Number: US-BIOGEN-2018BI00514020

PATIENT
  Sex: Male

DRUGS (1)
  1. TYSABRI [Suspect]
     Active Substance: NATALIZUMAB
     Indication: MULTIPLE SCLEROSIS
     Route: 050
     Dates: start: 20120106

REACTIONS (4)
  - Gait inability [Not Recovered/Not Resolved]
  - Gait disturbance [Unknown]
  - Cognitive disorder [Not Recovered/Not Resolved]
  - Motor dysfunction [Unknown]
